FAERS Safety Report 9345472 (Version 1)
Quarter: 2013Q2

REPORT INFORMATION
  Report Type: Spontaneous
  Country: GB (occurrence: GB)
  Receive Date: 20130613
  Receipt Date: 20130613
  Transmission Date: 20140414
  Serious: Yes (Death)
  Sender: FDA-Public Use
  Company Number: GB-ROCHE-1235602

PATIENT
  Sex: Male

DRUGS (2)
  1. MYCOPHENOLATE MOFETIL [Suspect]
     Indication: PRODUCT USED FOR UNKNOWN INDICATION
     Route: 065
  2. NPLATE [Suspect]
     Indication: IDIOPATHIC THROMBOCYTOPENIC PURPURA
     Route: 065

REACTIONS (7)
  - Death [Fatal]
  - Oedema peripheral [Unknown]
  - Protein-losing gastroenteropathy [Unknown]
  - Duodenal ulcer [Unknown]
  - Malaise [Unknown]
  - Platelet count decreased [Unknown]
  - Blood albumin decreased [Unknown]
